FAERS Safety Report 11984419 (Version 1)
Quarter: 2016Q1

REPORT INFORMATION
  Report Type: Spontaneous
  Country: US (occurrence: US)
  Receive Date: 20160201
  Receipt Date: 20160201
  Transmission Date: 20160526
  Serious: No
  Sender: FDA-Public Use
  Company Number: US-KADMON PHARMACEUTICALS, LLC-KAD201506-001727

PATIENT
  Age: 70 Year
  Sex: Male
  Weight: 60.32 kg

DRUGS (6)
  1. NORVASC [Concomitant]
     Active Substance: AMLODIPINE BESYLATE
  2. VIEKIRA PAK [Suspect]
     Active Substance: DASABUVIR\OMBITASVIR\PARITAPREVIR\RITONAVIR
     Indication: HEPATITIS C
     Dosage: TABLET
     Route: 048
     Dates: start: 20150515, end: 20150528
  3. ALBUTEROL. [Concomitant]
     Active Substance: ALBUTEROL
  4. ASPIRIN. [Concomitant]
     Active Substance: ASPIRIN
  5. RIBAVIRIN. [Suspect]
     Active Substance: RIBAVIRIN
     Indication: HEPATITIS C
     Route: 048
     Dates: start: 20150515, end: 20150528
  6. METFORMIN [Concomitant]
     Active Substance: METFORMIN HYDROCHLORIDE

REACTIONS (6)
  - Chromaturia [Unknown]
  - Blood bilirubin increased [Unknown]
  - Ocular icterus [Unknown]
  - Haemoglobin decreased [Unknown]
  - Abdominal pain upper [Unknown]
  - Jaundice [Unknown]

NARRATIVE: CASE EVENT DATE: 201506
